FAERS Safety Report 12659769 (Version 2)
Quarter: 2016Q3

REPORT INFORMATION
  Report Type: Report from Study
  Country: US (occurrence: US)
  Receive Date: 20160817
  Receipt Date: 20160913
  Transmission Date: 20161109
  Serious: No
  Sender: FDA-Public Use
  Company Number: US-MALLINCKRODT-T201603583

PATIENT
  Age: 52 Year
  Sex: Female

DRUGS (1)
  1. REPOSITORY CORTICOTROPIN INJECTION [Suspect]
     Active Substance: CORTICOTROPIN
     Indication: PRODUCT USED FOR UNKNOWN INDICATION
     Dosage: UNKNOWN DOSE/FREQUENCY
     Route: 065

REACTIONS (8)
  - Injection site bruising [Recovered/Resolved]
  - Crying [Recovered/Resolved]
  - Swollen tongue [Recovered/Resolved]
  - Oedema peripheral [Recovered/Resolved]
  - Haematemesis [Recovered/Resolved]
  - Depression [Recovered/Resolved]
  - Crohn^s disease [Recovered/Resolved]
  - Decreased appetite [Recovered/Resolved]

NARRATIVE: CASE EVENT DATE: 20160706
